FAERS Safety Report 10793927 (Version 2)
Quarter: 2015Q1

REPORT INFORMATION
  Report Type: Spontaneous
  Country: FR (occurrence: FR)
  Receive Date: 20150213
  Receipt Date: 20150218
  Transmission Date: 20150721
  Serious: Yes (Hospitalization, Other)
  Sender: FDA-Public Use
  Company Number: FR-FRI-1000074342

PATIENT
  Age: 54 Year
  Sex: Female

DRUGS (7)
  1. LEVOTHYROX [Concomitant]
     Active Substance: LEVOTHYROXINE
  2. LYSANXIA [Suspect]
     Active Substance: PRAZEPAM
     Indication: DEPRESSION
     Dosage: 0.5 TABLET IN THE MORNING AND ONE IN THE EVENING
     Route: 048
     Dates: start: 2003
  3. TRANSIPEG [Concomitant]
     Active Substance: POLYETHYLENE GLYCOL 3350
  4. LYSANXIA [Suspect]
     Active Substance: PRAZEPAM
     Dosage: 2 BOXES AT 7:00 AM
     Route: 048
     Dates: start: 20150117, end: 20150117
  5. MILNACIPRAN [Suspect]
     Active Substance: MILNACIPRAN
     Indication: DEPRESSION
     Dosage: 2 DOSAGE FORMS
     Route: 048
     Dates: start: 20080429
  6. MILNACIPRAN [Suspect]
     Active Substance: MILNACIPRAN
     Dosage: 1 BOX AT 7:00 AM
     Route: 048
     Dates: start: 20150117, end: 20150117
  7. PARIET [Concomitant]
     Active Substance: RABEPRAZOLE SODIUM

REACTIONS (5)
  - Intentional self-injury [Recovering/Resolving]
  - Intentional overdose [Recovering/Resolving]
  - Vomiting [Recovered/Resolved]
  - Somnolence [Recovered/Resolved]
  - Suicidal ideation [Unknown]

NARRATIVE: CASE EVENT DATE: 20150117
